FAERS Safety Report 12556486 (Version 1)
Quarter: 2016Q3

REPORT INFORMATION
  Report Type: Spontaneous
  Country: FR (occurrence: FR)
  Receive Date: 20160714
  Receipt Date: 20160714
  Transmission Date: 20161109
  Serious: Yes (Hospitalization)
  Sender: FDA-Public Use
  Company Number: FR-PFIZER INC-3001693

PATIENT
  Age: 65 Year
  Sex: Female

DRUGS (26)
  1. ATRACURIUM BESILATE [Suspect]
     Active Substance: ATRACURIUM BESYLATE
     Dosage: UNK
     Dates: start: 20150623
  2. PARACETAMOL PANPHARMA [Suspect]
     Active Substance: ACETAMINOPHEN
     Dosage: UNK
     Dates: start: 20150623, end: 20150628
  3. APROVEL [Concomitant]
     Active Substance: IRBESARTAN
  4. ACTONEL [Concomitant]
     Active Substance: RISEDRONATE SODIUM
  5. EUPANTOL [Concomitant]
     Active Substance: PANTOPRAZOLE SODIUM
     Indication: POSTOPERATIVE CARE
     Dosage: UNK
     Dates: start: 20150624
  6. BIONOLYTE GLUCOSE [Concomitant]
     Dosage: 2000 ML, UNK
     Dates: start: 20150623, end: 20150623
  7. KETAMINE PANPHARMA [Suspect]
     Active Substance: KETAMINE
     Dosage: 15 MG, UNK
     Dates: start: 20150623
  8. PROFENID [Suspect]
     Active Substance: KETOPROFEN
     Indication: PROCEDURAL PAIN
     Dosage: 50 MG, UNK
     Route: 030
     Dates: start: 20150623, end: 20150623
  9. AMOXICILLIN CLAVULANIC ACID [Suspect]
     Active Substance: AMOXICILLIN\CLAVULANIC ACID
     Indication: INFECTION PROPHYLAXIS
     Dosage: 4 G, UNK
     Route: 042
     Dates: start: 20150623, end: 20150623
  10. LEXOMIL [Concomitant]
     Active Substance: BROMAZEPAM
  11. ACUPAN [Concomitant]
     Active Substance: NEFOPAM HYDROCHLORIDE
     Dosage: UNK
     Route: 042
     Dates: start: 20160623
  12. DROLEPTAN [Suspect]
     Active Substance: DROPERIDOL
     Dosage: 125 MG, UNK
     Dates: start: 20150623
  13. PROPOFOL. [Suspect]
     Active Substance: PROPOFOL
     Dosage: 180 MG, UNK
     Dates: start: 20150623
  14. VITAMIN B [Concomitant]
     Active Substance: VITAMIN B
     Dosage: 2000 ML, UNK
  15. VOLUVEN /06404801/ [Concomitant]
     Dosage: 500 ML, UNK
     Dates: start: 20150623, end: 20150623
  16. CONTRAMAL [Suspect]
     Active Substance: TRAMADOL HYDROCHLORIDE
     Dosage: 100 MG, UNK
     Dates: start: 20150623, end: 20150628
  17. DEXAMETHASONE. [Suspect]
     Active Substance: DEXAMETHASONE
     Dosage: 8 MG, UNK
     Dates: start: 20150623
  18. RINGER-LACTATE [Concomitant]
     Dosage: 1000 ML, UNK
     Dates: start: 20150623, end: 20150623
  19. LASILIX [Concomitant]
     Active Substance: FUROSEMIDE
     Route: 041
  20. ATROPINE SULFATE AGUETTANT [Suspect]
     Active Substance: ATROPINE SULFATE
     Dosage: 1 MG, UNK
     Route: 041
     Dates: start: 20150623
  21. LOVENOX [Concomitant]
     Active Substance: ENOXAPARIN SODIUM
     Indication: POSTOPERATIVE CARE
     Dosage: 4000 IU, UNK
     Dates: start: 20150623, end: 20150623
  22. OFLOXACINE ARROW [Suspect]
     Active Substance: OFLOXACIN
     Indication: URINARY TRACT INFECTION
     Dosage: 1 G, UNK
     Dates: start: 20150623, end: 20150623
  23. CALCIPARINE [Concomitant]
     Active Substance: HEPARIN CALCIUM
     Indication: POSTOPERATIVE CARE
     Dosage: UNK
     Dates: start: 20150624
  24. PLASMION [Concomitant]
     Active Substance: GELATIN
     Dosage: 500 ML, UNK
     Dates: start: 20150624, end: 20150624
  25. EPHEDRINE. [Suspect]
     Active Substance: EPHEDRINE
     Dosage: 6 MG, UNK
     Dates: start: 20150623
  26. SUFENTANIL [Suspect]
     Active Substance: SUFENTANIL
     Dosage: UNK
     Dates: start: 20150623

REACTIONS (1)
  - Acute kidney injury [Recovering/Resolving]

NARRATIVE: CASE EVENT DATE: 20150624
